FAERS Safety Report 9164677 (Version 1)
Quarter: 2013Q1

REPORT INFORMATION
  Report Type: Spontaneous
  Country: IT (occurrence: None)
  Receive Date: 20130226
  Receipt Date: 20130226
  Transmission Date: 20140127
  Serious: Yes (Other)
  Sender: FDA-Public Use
  Company Number: AUR-APL-2013-01663

PATIENT
  Age: 68 Year
  Sex: Female

DRUGS (6)
  1. CITALOPRAM [Suspect]
     Indication: PRODUCT USED FOR UNKNOWN INDICATION
     Dosage: 600 MG, TOTAL, ORAL
     Route: 048
     Dates: start: 20120814, end: 20120814
  2. LANSOX (LANSOPRAZOLE) [Concomitant]
  3. ZYLORIC (ALLOPURINOL) [Concomitant]
  4. MOVICOL [Concomitant]
  5. EXOCIN (OFLOXACIN) [Concomitant]
  6. MUSCORIL (THIOCOLCHICOSIDE) [Concomitant]

REACTIONS (7)
  - Bone marrow toxicity [None]
  - Muscle rigidity [None]
  - Nausea [None]
  - Somnolence [None]
  - Somnolence [None]
  - Musculoskeletal stiffness [None]
  - Accidental overdose [None]
